FAERS Safety Report 5061867-X (Version None)
Quarter: 2006Q3

REPORT INFORMATION
  Report Type: 
  Country: None (occurrence: None)
  Receive Date: 20060720
  Receipt Date: 20060720
  Transmission Date: 20061208
  Serious: Yes (Hospitalization)
  Sender: FDA-Public Use
  Company Number: None

PATIENT
  Age: 62 Year
  Sex: Male
  Weight: 79.3795 kg

DRUGS (4)
  1. PHENOXYBENZAMINE [Suspect]
     Indication: HYPERTENSION
     Dosage: 10 MG BID
     Dates: start: 20060414
  2. PHENOXYBENZAMINE [Suspect]
     Indication: PHAEOCHROMOCYTOMA
     Dosage: 10 MG BID
     Dates: start: 20060414
  3. ATENOLOL [Suspect]
     Dosage: 50 MG AM 25 MG PM
  4. ENALAPRIL MALEATE [Suspect]
     Dosage: 5 MG DAILY

REACTIONS (2)
  - DIZZINESS [None]
  - ORTHOSTATIC HYPOTENSION [None]
